FAERS Safety Report 5407587-0 (Version None)
Quarter: 2007Q3

REPORT INFORMATION
  Report Type: 
  Country: None (occurrence: None)
  Receive Date: 20070807
  Receipt Date: 20070807
  Transmission Date: 20080115
  Serious: Yes (Other)
  Sender: FDA-Public Use
  Company Number: TZ-BOEHRINGER INGELHEIM PHARMACEUTICALS, INC.-2007-DE-04518GD

PATIENT

DRUGS (8)
  1. NEVIRAPINE [Suspect]
     Indication: PROPHYLAXIS
     Route: 064
  2. NEVIRAPINE [Suspect]
     Indication: HUMAN IMMUNODEFICIENCY VIRUS TRANSMISSION
     Route: 063
  3. ZIDOVUDINE [Suspect]
     Indication: PROPHYLAXIS
     Route: 064
  4. ZIDOVUDINE [Suspect]
     Indication: HUMAN IMMUNODEFICIENCY VIRUS TRANSMISSION
     Route: 063
  5. ZIDOVUDINE [Suspect]
  6. LAMIVUDINE [Suspect]
     Indication: PROPHYLAXIS
     Route: 064
  7. LAMIVUDINE [Suspect]
     Indication: HUMAN IMMUNODEFICIENCY VIRUS TRANSMISSION
     Route: 063
  8. LAMIVUDINE [Suspect]

REACTIONS (1)
  - HIV INFECTION [None]
